FAERS Safety Report 9179282 (Version 1)
Quarter: 2013Q1

REPORT INFORMATION
  Report Type: Spontaneous
  Country: CN (occurrence: CN)
  Receive Date: 20130321
  Receipt Date: 20130321
  Transmission Date: 20140127
  Serious: Yes (Death, Other)
  Sender: FDA-Public Use
  Company Number: CN-ROCHE-1203149

PATIENT
  Age: 67 Year
  Sex: Female

DRUGS (1)
  1. XELODA [Suspect]
     Indication: BREAST CANCER
     Dosage: START DATE:/JAN/2013
     Route: 048
     Dates: end: 20130124

REACTIONS (11)
  - Renal failure [Fatal]
  - Hepatic failure [Fatal]
  - Nausea [Not Recovered/Not Resolved]
  - Diarrhoea [Not Recovered/Not Resolved]
  - Tongue eruption [Not Recovered/Not Resolved]
  - Lip pain [Not Recovered/Not Resolved]
  - Lip swelling [Not Recovered/Not Resolved]
  - Sputum increased [Recovered/Resolved]
  - Hepatic function abnormal [Not Recovered/Not Resolved]
  - Renal impairment [Not Recovered/Not Resolved]
  - Skin ulcer [Not Recovered/Not Resolved]
